FAERS Safety Report 25393114 (Version 1)
Quarter: 2025Q2

REPORT INFORMATION
  Report Type: Report from Study
  Country: US (occurrence: US)
  Receive Date: 20250604
  Receipt Date: 20250604
  Transmission Date: 20250717
  Serious: Yes (Hospitalization)
  Sender: ABBVIE
  Company Number: US-ABBVIE-6095221

PATIENT
  Age: 83 Year
  Sex: Female
  Weight: 65.77 kg

DRUGS (4)
  1. IMBRUVICA [Suspect]
     Active Substance: IBRUTINIB
     Indication: Mantle cell lymphoma
     Route: 048
     Dates: start: 202202, end: 202504
  2. VITAMIN D [Concomitant]
     Active Substance: VITAMIN D NOS
     Indication: Vitamin supplementation
  3. CRANBERRY [Concomitant]
     Active Substance: CRANBERRY
     Indication: Nutritional supplementation
  4. VITAMIN C [Concomitant]
     Active Substance: ASCORBIC ACID
     Indication: Vitamin supplementation

REACTIONS (12)
  - Urinary tract infection [Recovered/Resolved]
  - Urinary tract infection [Not Recovered/Not Resolved]
  - Cystocele [Not Recovered/Not Resolved]
  - Urosepsis [Unknown]
  - Cardiac murmur [Unknown]
  - Urinary tract infection [Recovered/Resolved]
  - Kidney infection [Unknown]
  - Aortic valve disease [Recovered/Resolved]
  - Sepsis [Recovered/Resolved]
  - Immunosuppression [Unknown]
  - Bladder irritation [Not Recovered/Not Resolved]
  - Septic shock [Recovered/Resolved]

NARRATIVE: CASE EVENT DATE: 20230101
